FAERS Safety Report 5523265-1 (Version None)
Quarter: 2007Q4

REPORT INFORMATION
  Report Type: 
  Country: None (occurrence: None)
  Receive Date: 20071121
  Receipt Date: 20071107
  Transmission Date: 20080405
  Serious: Yes (Hospitalization)
  Sender: FDA-Public Use
  Company Number: US-BAYER-200713668BCC

PATIENT
  Age: 52 Year
  Sex: Male
  Weight: 86 kg

DRUGS (3)
  1. CAMPHO-PHENIQUE [Suspect]
     Indication: DRUG USE FOR UNKNOWN INDICATION
     Route: 061
     Dates: start: 20071104
  2. ALCOHOL [Suspect]
  3. DILANTIN [Concomitant]

REACTIONS (1)
  - CONVULSION [None]
